FAERS Safety Report 6713089-1 (Version None)
Quarter: 2010Q2

REPORT INFORMATION
  Report Type: 
  Country: None (occurrence: None)
  Receive Date: 20100506
  Receipt Date: 20090921
  Transmission Date: 20101027
  Serious: Yes (Hospitalization, Other)
  Sender: FDA-Public Use
  Company Number: US-BAYER-200832913NA

PATIENT
  Age: 57 Year
  Sex: Male
  Weight: 121 kg

DRUGS (18)
  1. MAGNEVIST [Suspect]
     Indication: NUCLEAR MAGNETIC RESONANCE IMAGING THORACIC
     Dates: start: 20060822, end: 20060822
  2. METOPROLOL [Concomitant]
  3. PREDNISONE [Concomitant]
  4. PROGAF [Concomitant]
  5. CELLCEPT [Concomitant]
  6. RAPAMUNE [Concomitant]
  7. CALICTRIOL [Concomitant]
  8. EPOGEN [Concomitant]
  9. IRON [Concomitant]
  10. ZEMPLAR [Concomitant]
  11. RENAGEL [Concomitant]
  12. LISINOPRIL [Concomitant]
  13. MINOXIDIL [Concomitant]
  14. CLONIDINE [Concomitant]
  15. NORVASC [Concomitant]
  16. SYNTHROID [Concomitant]
  17. GLUCOTROL [Concomitant]
  18. COLCHICINE [Concomitant]

REACTIONS (15)
  - CHILLS [None]
  - DISCOMFORT [None]
  - DIZZINESS [None]
  - DYSPNOEA [None]
  - FALL [None]
  - FLUID OVERLOAD [None]
  - LOSS OF CONSCIOUSNESS [None]
  - MYALGIA [None]
  - NAUSEA [None]
  - PAIN [None]
  - PLATELET COUNT DECREASED [None]
  - PYREXIA [None]
  - RESPIRATORY DISORDER [None]
  - SKIN EXFOLIATION [None]
  - VOMITING [None]
